FAERS Safety Report 11422895 (Version 3)
Quarter: 2015Q4

REPORT INFORMATION
  Report Type: Spontaneous
  Country: FR (occurrence: FR)
  Receive Date: 20150827
  Receipt Date: 20151223
  Transmission Date: 20160304
  Serious: Yes (Hospitalization)
  Sender: FDA-Public Use
  Company Number: FR-009507513-1508FRA010482

PATIENT
  Age: 68 Year
  Sex: Male
  Weight: 86.5 kg

DRUGS (14)
  1. VIRAFERONPEG [Suspect]
     Active Substance: PEGINTERFERON ALFA-2B
     Indication: HEPATITIS C
     Dosage: 120 MICROGRAM, QW
     Dates: start: 20140627, end: 20140918
  2. DAONIL [Concomitant]
     Active Substance: GLYBURIDE
     Indication: DIABETES MELLITUS
     Dosage: 5 MG, TID, 1-1-1
     Dates: start: 1992
  3. INIPOMP [Concomitant]
     Active Substance: PANTOPRAZOLE SODIUM
     Indication: HYPERCHLORHYDRIA
     Dosage: 40 MG, QD, 0-0-1
     Dates: start: 20100901
  4. DAFALGAN [Concomitant]
     Active Substance: ACETAMINOPHEN
     Dosage: 50 MG, TID,  2-2-2
  5. REBETOL [Suspect]
     Active Substance: RIBAVIRIN
     Indication: HEPATITIS C
     Dosage: 200 MG, 6 TIMES A DAY
     Route: 048
     Dates: start: 20140627, end: 20140918
  6. DELURSAN [Concomitant]
     Active Substance: URSODIOL
     Indication: ABDOMINAL PAIN UPPER
     Dosage: 500 MG, BID, 1-0-1
     Dates: start: 19950622
  7. DICETEL [Concomitant]
     Active Substance: PINAVERIUM BROMIDE
     Indication: GASTROINTESTINAL DISORDER
     Dosage: 100 MG, BID, 1-0-1
     Dates: start: 19950330
  8. SOVALDI [Concomitant]
     Active Substance: SOFOSBUVIR
     Indication: HEPATITIS C
     Dosage: 400 MG, QD, 1-0-0
     Dates: start: 20140627, end: 20140918
  9. AVODART [Concomitant]
     Active Substance: DUTASTERIDE
     Indication: PROSTATIC DISORDER
     Dosage: 0.5 MG, QD, 1-0-0
     Dates: start: 20100901
  10. OMEXEL [Concomitant]
     Active Substance: TAMSULOSIN HYDROCHLORIDE
     Indication: PROSTATIC DISORDER
     Dosage: UNK UNK, QD, 0-0-1
     Dates: start: 20100901
  11. TRAMADOL HYDROCHLORIDE. [Concomitant]
     Active Substance: TRAMADOL HYDROCHLORIDE
     Indication: OSTEOARTHRITIS
     Dosage: 100 MG, 1.5 QD, 0.5-0-1
     Dates: start: 201403
  12. GLUCOPHAGE [Concomitant]
     Active Substance: METFORMIN HYDROCHLORIDE
     Indication: DIABETES MELLITUS
     Dosage: 100 MG, QD, 0-0-1
     Dates: start: 200303
  13. LYRICA [Concomitant]
     Active Substance: PREGABALIN
     Indication: OSTEOARTHRITIS
     Dosage: 75 MG, QD, 0-0-1
     Dates: start: 201403
  14. CARDENSIEL [Concomitant]
     Active Substance: BISOPROLOL FUMARATE
     Dosage: 5 MG, QD, 1-0-0

REACTIONS (4)
  - Thrombocytopenia [Unknown]
  - Bone disorder [Not Recovered/Not Resolved]
  - Neutropenia [Unknown]
  - Anaemia [Unknown]

NARRATIVE: CASE EVENT DATE: 20140729
